FAERS Safety Report 4636875-0 (Version None)
Quarter: 2005Q2

REPORT INFORMATION
  Report Type: 
  Country: None (occurrence: None)
  Receive Date: 20050413
  Receipt Date: 20050413
  Transmission Date: 20051028
  Serious: Yes (Other)
  Sender: FDA-Public Use
  Company Number: None

PATIENT
  Age: 24 Year
  Sex: Female
  Weight: 74.8435 kg

DRUGS (2)
  1. ZOLOFT [Suspect]
     Indication: ANXIETY DISORDER
     Dates: start: 20040917, end: 20050104
  2. ZOLOFT [Suspect]
     Indication: DEPRESSION
     Dates: start: 20040917, end: 20050104

REACTIONS (2)
  - ADVERSE EVENT [None]
  - SUICIDAL IDEATION [None]
